FAERS Safety Report 5643471-5 (Version None)
Quarter: 2008Q1

REPORT INFORMATION
  Report Type: 
  Country: None (occurrence: None)
  Receive Date: 20080228
  Receipt Date: 20080218
  Transmission Date: 20080703
  Serious: Yes (Other)
  Sender: FDA-Public Use
  Company Number: GB-PFIZER INC-2008016496

PATIENT
  Sex: Male

DRUGS (1)
  1. NICOTINE NASAL SPRAY [Suspect]
     Dosage: TEXT:1 BOTTLE EVERY 5 DAYS
     Route: 045

REACTIONS (3)
  - DEPENDENCE [None]
  - HEAD DISCOMFORT [None]
  - INCORRECT DRUG ADMINISTRATION DURATION [None]
